FAERS Safety Report 12404923 (Version 2)
Quarter: 2016Q3

REPORT INFORMATION
  Report Type: Spontaneous
  Country: BR (occurrence: BR)
  Receive Date: 20160525
  Receipt Date: 20160718
  Transmission Date: 20161109
  Serious: Yes (Other)
  Sender: FDA-Public Use
  Company Number: BR-ELI_LILLY_AND_COMPANY-BR201605008306

PATIENT
  Sex: Female
  Weight: 70 kg

DRUGS (6)
  1. HUMULIN R [Suspect]
     Active Substance: INSULIN HUMAN
     Indication: TYPE 2 DIABETES MELLITUS
     Dosage: 20 IU, BEFORE LUNCH
     Route: 058
     Dates: start: 2006
  2. HUMULIN R [Suspect]
     Active Substance: INSULIN HUMAN
     Dosage: 20 IU, BEFORE DINNER
     Route: 058
     Dates: start: 2006
  3. LOSARTAN POTASSIUM. [Concomitant]
     Active Substance: LOSARTAN POTASSIUM
     Dosage: UNK, UNKNOWN
     Route: 065
  4. PLENANCE [Concomitant]
     Active Substance: ROSUVASTATIN
     Indication: CAROTID ARTERY OCCLUSION
     Dosage: UNK, UNKNOWN
     Route: 065
  5. LUCENTIS [Concomitant]
     Active Substance: RANIBIZUMAB
     Dosage: UNK, UNKNOWN
  6. HUMULIN N [Concomitant]
     Active Substance: INSULIN HUMAN
     Dosage: UNK, UNKNOWN
     Route: 065

REACTIONS (11)
  - Glaucoma [Recovered/Resolved]
  - Carotid artery occlusion [Not Recovered/Not Resolved]
  - Hypoaesthesia [Unknown]
  - Iris neovascularisation [Unknown]
  - Hyperglycaemia [Not Recovered/Not Resolved]
  - Blood triglycerides increased [Not Recovered/Not Resolved]
  - Hypertension [Not Recovered/Not Resolved]
  - Cataract [Recovered/Resolved]
  - Hypoglycaemia [Not Recovered/Not Resolved]
  - Blood cholesterol increased [Not Recovered/Not Resolved]
  - Stasis dermatitis [Not Recovered/Not Resolved]

NARRATIVE: CASE EVENT DATE: 2006
